FAERS Safety Report 24537327 (Version 1)
Quarter: 2024Q4

REPORT INFORMATION
  Report Type: Spontaneous
  Country: US (occurrence: US)
  Receive Date: 20241022
  Receipt Date: 20241022
  Transmission Date: 20250115
  Serious: No
  Sender: AMGEN
  Company Number: US-AMGEN-USASP2024207967

PATIENT
  Age: 74 Year
  Sex: Male

DRUGS (1)
  1. AIMOVIG [Suspect]
     Active Substance: ERENUMAB-AOOE
     Indication: Product used for unknown indication
     Dosage: 70 MILLIGRAM
     Route: 065

REACTIONS (5)
  - Device difficult to use [Unknown]
  - Drug dose omission by device [Unknown]
  - Wrong technique in product usage process [Unknown]
  - Oropharyngeal discomfort [Not Recovered/Not Resolved]
  - Product communication issue [Unknown]

NARRATIVE: CASE EVENT DATE: 20241013
